FAERS Safety Report 19559506 (Version 2)
Quarter: 2021Q3

REPORT INFORMATION
  Report Type: Report from Study
  Country: US (occurrence: US)
  Receive Date: 20210715
  Receipt Date: 20210720
  Transmission Date: 20211014
  Serious: Yes (Other)
  Sender: FDA-Public Use
  Company Number: US-BIOVITRUM-2021US0475

PATIENT
  Sex: Female

DRUGS (2)
  1. KINERET [Suspect]
     Active Substance: ANAKINRA
     Indication: RHEUMATOID ARTHRITIS
     Dosage: /0.67ML
     Route: 058
     Dates: start: 20201223
  2. KINERET [Suspect]
     Active Substance: ANAKINRA
     Route: 058
     Dates: start: 20201230

REACTIONS (10)
  - Anaemia [Unknown]
  - Injection site pain [Unknown]
  - Pain [Unknown]
  - Haematochezia [Unknown]
  - Unevaluable event [Unknown]
  - Product dose omission issue [Unknown]
  - Drug ineffective [Unknown]
  - Hypoaesthesia [Unknown]
  - Pain in extremity [Unknown]
  - Discomfort [Unknown]
